FAERS Safety Report 21571370 (Version 1)
Quarter: 2022Q4

REPORT INFORMATION
  Report Type: Spontaneous
  Country: US (occurrence: US)
  Receive Date: 20221109
  Receipt Date: 20221109
  Transmission Date: 20230112
  Serious: No
  Sender: FDA-Public Use
  Company Number: US-TEVA-2022-US-2820922

PATIENT
  Sex: Female

DRUGS (1)
  1. ATENOLOL [Suspect]
     Active Substance: ATENOLOL
     Indication: Product used for unknown indication
     Route: 065

REACTIONS (5)
  - Fall [Recovered/Resolved with Sequelae]
  - Upper limb fracture [Not Recovered/Not Resolved]
  - Foot fracture [Not Recovered/Not Resolved]
  - Pain [Unknown]
  - Abdominal discomfort [Unknown]
